FAERS Safety Report 9684451 (Version 2)
Quarter: 2013Q4

REPORT INFORMATION
  Report Type: Report from Study
  Country: US (occurrence: US)
  Receive Date: 20131112
  Receipt Date: 20131121
  Transmission Date: 20140711
  Serious: Yes (Other)
  Sender: FDA-Public Use
  Company Number: US-PURDUE-USA-2013-0108329

PATIENT
  Age: 64 Year
  Sex: Male

DRUGS (2)
  1. OXY CR TAB [Suspect]
     Indication: PRODUCT USED FOR UNKNOWN INDICATION
     Dosage: UNK
     Route: 048
     Dates: start: 2013
  2. OXY CR TAB [Suspect]
     Dosage: 120 MG, BID
     Route: 048
     Dates: start: 20131017

REACTIONS (4)
  - Basal cell carcinoma [Not Recovered/Not Resolved]
  - Malignant neoplasm progression [Unknown]
  - Pain [Unknown]
  - Incorrect dose administered [Unknown]
